FAERS Safety Report 18222454 (Version 1)
Quarter: 2020Q3

REPORT INFORMATION
  Report Type: Spontaneous
  Country: US (occurrence: US)
  Receive Date: 20200902
  Receipt Date: 20200902
  Transmission Date: 20201103
  Serious: Yes (Death)
  Sender: FDA-Public Use
  Company Number: None

PATIENT
  Sex: Male
  Weight: 167 kg

DRUGS (3)
  1. METHOTREXATE. [Suspect]
     Active Substance: METHOTREXATE
  2. VINCRISTINE SULFATE. [Suspect]
     Active Substance: VINCRISTINE SULFATE
  3. DEXAMETHASONE. [Suspect]
     Active Substance: DEXAMETHASONE

REACTIONS (5)
  - Respiratory failure [None]
  - Shock [None]
  - Blast crisis in myelogenous leukaemia [None]
  - Renal failure [None]
  - Palliative care [None]

NARRATIVE: CASE EVENT DATE: 20200820
